FAERS Safety Report 6343457-1 (Version None)
Quarter: 2009Q3

REPORT INFORMATION
  Report Type: 
  Country: None (occurrence: None)
  Receive Date: 20090908
  Receipt Date: 20090828
  Transmission Date: 20100115
  Serious: Yes (Life-Threatening, Hospitalization)
  Sender: FDA-Public Use
  Company Number: JP-PFIZER INC-2008095690

PATIENT
  Age: 64 Year

DRUGS (13)
  1. SUNITINIB MALATE [Suspect]
     Indication: RENAL CELL CARCINOMA
     Dosage: 50 MG, 1X/DAY
     Route: 048
     Dates: start: 20080829
  2. ZANTAC [Concomitant]
     Dosage: DAILY
     Route: 048
  3. ARTIST [Concomitant]
     Route: 048
  4. ADALAT CC [Concomitant]
     Route: 048
  5. PHELLOBERIN A [Concomitant]
     Dosage: UNK
     Route: 048
     Dates: end: 20090226
  6. CERCINE [Concomitant]
     Dosage: UNK
     Route: 048
     Dates: end: 20090226
  7. LEVOFLOXACIN [Concomitant]
     Dosage: UNK
     Route: 048
     Dates: start: 20090119, end: 20090208
  8. THYRADIN S [Concomitant]
     Dosage: UNK
     Route: 048
     Dates: start: 20090127, end: 20090202
  9. BLOPRESS [Concomitant]
     Dosage: UNK
     Route: 048
     Dates: start: 20081114, end: 20090220
  10. ZITHROMAX [Concomitant]
     Dosage: UNK
     Route: 048
     Dates: start: 20090210, end: 20090212
  11. FINIBAX [Concomitant]
     Dosage: UNK
     Route: 042
     Dates: start: 20090202, end: 20090210
  12. ADONA [Concomitant]
     Dosage: UNK
     Route: 048
     Dates: start: 20081211
  13. TRANSAMIN [Concomitant]
     Dosage: UNK
     Dates: start: 20081211

REACTIONS (6)
  - BLOOD CREATININE INCREASED [None]
  - NEUTROPHIL COUNT DECREASED [None]
  - PNEUMONIA [None]
  - PYELONEPHRITIS ACUTE [None]
  - RESPIRATORY FAILURE [None]
  - WHITE BLOOD CELL COUNT DECREASED [None]
